FAERS Safety Report 13522731 (Version 1)
Quarter: 2017Q2

REPORT INFORMATION
  Report Type: Report from Study
  Country: CA (occurrence: CA)
  Receive Date: 20170508
  Receipt Date: 20170508
  Transmission Date: 20170830
  Serious: Yes (Hospitalization)
  Sender: FDA-Public Use
  Company Number: CA-PFIZER INC-2017194481

PATIENT
  Age: 51 Year
  Sex: Male

DRUGS (29)
  1. RITUXIMAB [Suspect]
     Active Substance: RITUXIMAB
     Indication: B-CELL LYMPHOMA
     Dosage: 375 MG/M2,1 IN 21 D
     Route: 042
     Dates: start: 20160505
  2. DEXAMETHASONE. [Concomitant]
     Active Substance: DEXAMETHASONE
     Indication: PROPHYLAXIS OF NAUSEA AND VOMITING
     Dosage: 4 MG, 8 HOURS POST CHEMO
     Route: 048
     Dates: start: 20160505
  3. GRAVOL [Concomitant]
     Active Substance: DIMENHYDRINATE
     Dosage: UNK
     Dates: start: 20160510
  4. VINCRISTINE SULFATE. [Suspect]
     Active Substance: VINCRISTINE SULFATE
     Indication: B-CELL LYMPHOMA
     Dosage: 1.4 MG/M2, 1 IN 21 D
     Route: 042
     Dates: start: 20160506
  5. FENTANYL. [Concomitant]
     Active Substance: FENTANYL
     Indication: FLANK PAIN
     Dosage: 137 UG, AS NEEDED
     Dates: start: 20160425
  6. METOCLOPRAMIDE. [Concomitant]
     Active Substance: METOCLOPRAMIDE
     Indication: NAUSEA
     Dosage: 10 MG, EVERY 4 HRS PRN
     Route: 048
     Dates: start: 20160508, end: 20160508
  7. GRAVOL [Concomitant]
     Active Substance: DIMENHYDRINATE
     Indication: NAUSEA
     Dosage: UNK
     Dates: start: 20160506
  8. TAMSULOSIN [Concomitant]
     Active Substance: TAMSULOSIN
     Indication: FLANK PAIN
     Dosage: 0.4 MG, UNK
     Route: 048
     Dates: start: 20160410
  9. ALLOPURINOL. [Concomitant]
     Active Substance: ALLOPURINOL
     Indication: PROPHYLAXIS
     Dosage: 300 MG, 1 IN 2 D
     Route: 048
     Dates: start: 20160506, end: 20160527
  10. ONDANSETRON [Concomitant]
     Active Substance: ONDANSETRON
     Indication: PROPHYLAXIS OF NAUSEA AND VOMITING
     Dosage: 8 MG, 30 MIN PRE CHEMO; 8 HR POST CHEMO
     Route: 048
     Dates: start: 20160505, end: 20160823
  11. APREPITANT. [Concomitant]
     Active Substance: APREPITANT
     Indication: PROPHYLAXIS OF NAUSEA AND VOMITING
     Dosage: UNK
     Dates: start: 20160526, end: 20160528
  12. VENETOCLAX [Suspect]
     Active Substance: VENETOCLAX
     Indication: B-CELL LYMPHOMA
     Dosage: 800 MG, DAILY (CYCLE 2 DAY 1-10)
     Route: 048
     Dates: start: 20160509
  13. CYCLOPHOSPHAMIDE. [Suspect]
     Active Substance: CYCLOPHOSPHAMIDE
     Indication: B-CELL LYMPHOMA
     Dosage: 750 MG/M2,1 IN 21 D
     Route: 042
     Dates: start: 20160506
  14. VENLAFAXINE [Concomitant]
     Active Substance: VENLAFAXINE HYDROCHLORIDE
     Dosage: UNK
     Dates: start: 20160425, end: 20160711
  15. DEXAMETHASONE. [Concomitant]
     Active Substance: DEXAMETHASONE
     Dosage: 8 MG, PRE CHEMO
     Route: 048
     Dates: start: 20160505
  16. LYRICA [Concomitant]
     Active Substance: PREGABALIN
     Indication: FLANK PAIN
     Dosage: 50 MG, 2X/DAY
     Route: 048
     Dates: start: 20160417
  17. SENNOSIDES. [Concomitant]
     Active Substance: SENNOSIDES
     Indication: CONSTIPATION PROPHYLAXIS
     Dosage: 1-2 TWICE A DAY AS NEEDED
     Route: 048
     Dates: start: 20160410
  18. PREDNISONE. [Suspect]
     Active Substance: PREDNISONE
     Indication: B-CELL LYMPHOMA
     Dosage: 100 MG,DAYS 1-5 OF 21 DAY CYCLE
     Route: 048
     Dates: start: 20160505
  19. DALTEPARIN [Concomitant]
     Active Substance: DALTEPARIN
     Indication: THROMBOSIS PROPHYLAXIS
     Dosage: 5000 IU, UNK
     Route: 058
     Dates: start: 20160410, end: 20160510
  20. RANITIDINE. [Concomitant]
     Active Substance: RANITIDINE
     Indication: DYSPEPSIA
     Dosage: UNK
  21. DOXORUBICIN HCL [Suspect]
     Active Substance: DOXORUBICIN HYDROCHLORIDE
     Indication: B-CELL LYMPHOMA
     Dosage: 50 MG/M2,1 IN 21 D
     Route: 042
     Dates: start: 20160506
  22. DILAUDID [Concomitant]
     Active Substance: HYDROMORPHONE HYDROCHLORIDE
     Indication: FLANK PAIN
     Dosage: 8 MG, EVERY 1 HOUR AS NEEDED
     Route: 048
     Dates: start: 20160425, end: 20160602
  23. TYLENOL EXTRA STRENGTH [Concomitant]
     Active Substance: ACETAMINOPHEN
     Indication: MIGRAINE
     Dosage: 500 MG, 1-2 EVERY 6 HR AS NEEDED
     Route: 048
     Dates: start: 2013
  24. VENLAFAXINE [Concomitant]
     Active Substance: VENLAFAXINE HYDROCHLORIDE
     Indication: DEPRESSION
     Dosage: 150 MG, UNK
     Route: 048
     Dates: start: 20160421
  25. VENLAFAXINE [Concomitant]
     Active Substance: VENLAFAXINE HYDROCHLORIDE
     Dosage: 75 MG, UNK
     Route: 048
     Dates: start: 20160421, end: 20160424
  26. TAMSULOSIN [Concomitant]
     Active Substance: TAMSULOSIN
     Indication: DYSURIA
  27. OXAZEPAM. [Concomitant]
     Active Substance: OXAZEPAM
     Indication: INSOMNIA
     Dosage: 45 MG, AT BEDTIME
     Route: 048
     Dates: start: 2010, end: 20160711
  28. NEUPOGEN [Concomitant]
     Active Substance: FILGRASTIM
     Indication: PROPHYLAXIS
     Dosage: UNK
     Dates: start: 20160510, end: 20160514
  29. NEUPOGEN [Concomitant]
     Active Substance: FILGRASTIM
     Dosage: UNK
     Dates: start: 20160530, end: 20160603

REACTIONS (2)
  - Pancreatitis [Recovered/Resolved]
  - Pneumonia [Recovered/Resolved]

NARRATIVE: CASE EVENT DATE: 20160604
